FAERS Safety Report 5609089-5 (Version None)
Quarter: 2008Q1

REPORT INFORMATION
  Report Type: 
  Country: None (occurrence: None)
  Receive Date: 20080130
  Receipt Date: 20080130
  Transmission Date: 20080703
  Serious: No
  Sender: FDA-Public Use
  Company Number: None

PATIENT
  Sex: Male
  Weight: 59.8748 kg

DRUGS (2)
  1. AMIFOSTINE [Suspect]
     Indication: DRY MOUTH
     Dosage: 500MG M-F SQ 14 DOSES
     Route: 058
     Dates: start: 20071218
  2. AMIFOSTINE [Suspect]
     Indication: NEOPLASM MALIGNANT
     Dosage: 500MG M-F SQ 14 DOSES
     Route: 058
     Dates: start: 20071218

REACTIONS (2)
  - PRURITUS [None]
  - RASH MACULO-PAPULAR [None]
